FAERS Safety Report 23664980 (Version 3)
Quarter: 2024Q2

REPORT INFORMATION
  Report Type: Report from Study
  Country: KR (occurrence: KR)
  Receive Date: 20240322
  Receipt Date: 20240509
  Transmission Date: 20240716
  Serious: Yes (Hospitalization)
  Sender: FDA-Public Use
  Company Number: KR-Eisai-EC-2024-161977

PATIENT
  Age: 68 Year
  Sex: Female
  Weight: 74.7 kg

DRUGS (2)
  1. HALAVEN [Suspect]
     Active Substance: ERIBULIN MESYLATE
     Indication: HER2 positive breast cancer
     Dosage: UNKNOWN DOSE
     Route: 042
     Dates: start: 20220329, end: 20240314
  2. TRASTUZUMAB-DTTB [Suspect]
     Active Substance: TRASTUZUMAB-DTTB
     Indication: HER2 positive breast cancer
     Dosage: UNKNOWN DOSE AND FREQUENCY
     Route: 042
     Dates: start: 20220329

REACTIONS (1)
  - Pneumonia [Recovered/Resolved]

NARRATIVE: CASE EVENT DATE: 20240317
